FAERS Safety Report 21645937 (Version 2)
Quarter: 2023Q1

REPORT INFORMATION
  Report Type: Report from Study
  Country: US (occurrence: US)
  Receive Date: 20221126
  Receipt Date: 20230103
  Transmission Date: 20230418
  Serious: No
  Sender: FDA-Public Use
  Company Number: US-ABBVIE-4213265

PATIENT
  Sex: Female

DRUGS (1)
  1. HUMIRA [Suspect]
     Active Substance: ADALIMUMAB
     Indication: Crohn^s disease
     Route: 058

REACTIONS (5)
  - Sinusitis [Recovering/Resolving]
  - Diarrhoea [Unknown]
  - Asthenia [Unknown]
  - Pyrexia [Unknown]
  - Hyperhidrosis [Unknown]
